FAERS Safety Report 8410015-4 (Version None)
Quarter: 2012Q2

REPORT INFORMATION
  Report Type: 
  Country: None (occurrence: None)
  Receive Date: 20120323
  Receipt Date: 20110107
  Transmission Date: 20120825
  Serious: Yes (Other)
  Sender: FDA-Public Use
  Company Number: 163-21880-11010837

PATIENT
  Age: 78 Year
  Sex: Female

DRUGS (11)
  1. ASPRINE (ACETYLSALICYLIC ACID) [Concomitant]
  2. LEVOTHYROXIN (LEVOTHYROXIN) [Concomitant]
  3. VITAMIN B COMPLEX (B-KOMPLEX ^LECIVA^) [Concomitant]
  4. REVLIMID [Suspect]
     Indication: MULTIPLE MYELOMA
     Dosage: SEE IMAGE
     Route: 048
     Dates: start: 20070301
  5. REVLIMID [Suspect]
     Indication: MULTIPLE MYELOMA
     Dosage: SEE IMAGE
     Route: 048
     Dates: start: 20061101
  6. REVLIMID [Suspect]
     Indication: MULTIPLE MYELOMA
     Dosage: SEE IMAGE
     Route: 048
     Dates: start: 20070112
  7. REVLIMID [Suspect]
     Indication: MULTIPLE MYELOMA
     Dosage: SEE IMAGE
     Route: 048
     Dates: start: 20081001
  8. REVLIMID [Suspect]
     Indication: MULTIPLE MYELOMA
     Dosage: SEE IMAGE
     Route: 048
     Dates: start: 20100701
  9. MULTIVITAMIN [Concomitant]
  10. ACYCLOVIR [Concomitant]
  11. CALCIUM CARBONATE [Concomitant]

REACTIONS (2)
  - HYPOAESTHESIA [None]
  - THROMBOSIS [None]
